FAERS Safety Report 4515360-0 (Version None)
Quarter: 2004Q4

REPORT INFORMATION
  Report Type: 
  Country: None (occurrence: None)
  Receive Date: 20041029
  Receipt Date: 20040830
  Transmission Date: 20050328
  Serious: No
  Sender: FDA-Public Use
  Company Number: 200416507US

PATIENT
  Age: 9 Year
  Sex: Female

DRUGS (2)
  1. KETEK [Suspect]
     Indication: MIDDLE EAR EFFUSION
     Dosage: 800 MG
     Dates: start: 20040829
  2. KETEK [Suspect]
     Indication: SINUSITIS
     Dosage: 800 MG
     Dates: start: 20040829

REACTIONS (1)
  - ABDOMINAL PAIN UPPER [None]
